FAERS Safety Report 18266097 (Version 2)
Quarter: 2020Q4

REPORT INFORMATION
  Report Type: Spontaneous
  Country: JP (occurrence: JP)
  Receive Date: 20200915
  Receipt Date: 20201005
  Transmission Date: 20210113
  Serious: Yes (Hospitalization, Other)
  Sender: FDA-Public Use
  Company Number: JP-SA-2020SA246668

PATIENT

DRUGS (9)
  1. FLUOROURACIL. [Suspect]
     Active Substance: FLUOROURACIL
     Dosage: SECOND COURSE WAS STARTED
     Route: 042
  2. MITIGLINIDE [Concomitant]
     Active Substance: MITIGLINIDE
     Indication: DIABETES MELLITUS
     Dosage: 5 MG
     Route: 048
  3. OXALIPLATIN. [Suspect]
     Active Substance: OXALIPLATIN
     Indication: RECTAL CANCER STAGE III
     Dosage: UNK
     Route: 042
  4. OXALIPLATIN. [Suspect]
     Active Substance: OXALIPLATIN
     Dosage: SECOND COURSE WAS STARTED
     Route: 042
  5. ENALAPRIL [Concomitant]
     Active Substance: ENALAPRIL
     Indication: CHRONIC KIDNEY DISEASE
     Dosage: 5 MG
     Route: 048
  6. ENALAPRIL [Concomitant]
     Active Substance: ENALAPRIL
     Dosage: 5 MG
     Route: 048
  7. LINAGLIPTIN [Concomitant]
     Active Substance: LINAGLIPTIN
     Indication: DIABETES MELLITUS
     Dosage: 5 MG
     Route: 048
  8. FLUOROURACIL. [Suspect]
     Active Substance: FLUOROURACIL
     Indication: RECTAL CANCER STAGE III
     Dosage: 2400 MG/M2, QW
     Route: 042
  9. FOLINIC ACID [Suspect]
     Active Substance: LEUCOVORIN
     Indication: RECTAL CANCER STAGE III
     Dosage: UNK
     Route: 042

REACTIONS (21)
  - Decreased appetite [Recovering/Resolving]
  - Tongue disorder [Recovering/Resolving]
  - Renal impairment [Unknown]
  - Tonic convulsion [Recovering/Resolving]
  - Nausea [Recovering/Resolving]
  - Restlessness [Recovering/Resolving]
  - PCO2 decreased [Recovering/Resolving]
  - Blood triglycerides decreased [Unknown]
  - Altered state of consciousness [Recovering/Resolving]
  - Coma scale abnormal [Recovering/Resolving]
  - Blood bicarbonate decreased [Recovering/Resolving]
  - Blood creatinine increased [Unknown]
  - Lactic acidosis [Recovering/Resolving]
  - Dehydration [Recovering/Resolving]
  - Tachypnoea [Recovering/Resolving]
  - Stertor [Recovering/Resolving]
  - PO2 increased [Recovering/Resolving]
  - Hyperammonaemia [Recovering/Resolving]
  - Metabolic acidosis [Recovering/Resolving]
  - Blood urea increased [Unknown]
  - Hypophagia [Recovering/Resolving]
